FAERS Safety Report 6021699-2 (Version None)
Quarter: 2008Q4

REPORT INFORMATION
  Report Type: 
  Country: None (occurrence: None)
  Receive Date: 20081229
  Receipt Date: 20081222
  Transmission Date: 20090506
  Serious: Yes (Other)
  Sender: FDA-Public Use
  Company Number: US-MERCK-0812USA04548

PATIENT
  Age: 3 Year
  Sex: Male

DRUGS (1)
  1. SINGULAIR [Suspect]
     Indication: SLEEP DISORDER
     Route: 048
     Dates: start: 20071201

REACTIONS (1)
  - PARTIAL SEIZURES [None]
